FAERS Safety Report 7041223-5 (Version None)
Quarter: 2010Q3

REPORT INFORMATION
  Report Type: 
  Country: None (occurrence: None)
  Receive Date: 20100929
  Receipt Date: 20100614
  Transmission Date: 20110219
  Serious: No
  Sender: FDA-Public Use
  Company Number: US-WYE-H15686310

PATIENT
  Age: 74 Year
  Sex: Female
  Weight: 83.99 kg

DRUGS (6)
  1. PRISTIQ [Suspect]
     Indication: ANXIETY
     Dosage: (1 TABLET 1X PER 1 DAY, ORAL) (1 TABLET 1X PER 4 DAY) (1 TABLET 1X PER 3 DAY) (1 TABLET 1X PER 2 DAY
     Route: 048
     Dates: start: 20100427, end: 20100501
  2. PRISTIQ [Suspect]
     Indication: ANXIETY
     Dosage: (1 TABLET 1X PER 1 DAY, ORAL) (1 TABLET 1X PER 4 DAY) (1 TABLET 1X PER 3 DAY) (1 TABLET 1X PER 2 DAY
     Route: 048
     Dates: start: 20100501, end: 20100501
  3. PRISTIQ [Suspect]
     Indication: ANXIETY
     Dosage: (1 TABLET 1X PER 1 DAY, ORAL) (1 TABLET 1X PER 4 DAY) (1 TABLET 1X PER 3 DAY) (1 TABLET 1X PER 2 DAY
     Route: 048
     Dates: start: 20100501, end: 20100501
  4. PRISTIQ [Suspect]
     Indication: ANXIETY
     Dosage: (1 TABLET 1X PER 1 DAY, ORAL) (1 TABLET 1X PER 4 DAY) (1 TABLET 1X PER 3 DAY) (1 TABLET 1X PER 2 DAY
     Route: 048
     Dates: start: 20100501, end: 20100501
  5. SYNTHROID [Concomitant]
  6. NEXIUM [Concomitant]

REACTIONS (7)
  - ABDOMINAL DISCOMFORT [None]
  - ABDOMINAL PAIN LOWER [None]
  - CONSTIPATION [None]
  - DRUG WITHDRAWAL SYNDROME [None]
  - GASTROINTESTINAL TRACT IRRITATION [None]
  - INTENTIONAL DRUG MISUSE [None]
  - PRURITUS [None]
